FAERS Safety Report 15333235 (Version 1)
Quarter: 2018Q3

REPORT INFORMATION
  Report Type: Spontaneous
  Country: US (occurrence: US)
  Receive Date: 20180830
  Receipt Date: 20180830
  Transmission Date: 20181010
  Serious: No
  Sender: FDA-Public Use
  Company Number: US-SUN PHARMACEUTICAL INDUSTRIES LTD-2018US-183011

PATIENT
  Age: 36 Year
  Sex: Female

DRUGS (1)
  1. BUPRENORPHINE/NALOXONE [Suspect]
     Active Substance: BUPRENORPHINE\NALOXONE
     Indication: DRUG WITHDRAWAL SYNDROME
     Dosage: 1 DF, SINGLE
     Route: 065
     Dates: start: 20180731

REACTIONS (3)
  - Oral discomfort [Unknown]
  - Nausea [Unknown]
  - Retching [Unknown]

NARRATIVE: CASE EVENT DATE: 20180731
